FAERS Safety Report 7453628-9 (Version None)
Quarter: 2011Q2

REPORT INFORMATION
  Report Type: 
  Country: None (occurrence: None)
  Receive Date: 20110502
  Receipt Date: 20100116
  Transmission Date: 20111010
  Serious: Yes (Death, Other)
  Sender: FDA-Public Use
  Company Number: US-BAYER-201011380NA

PATIENT
  Age: 42 Year
  Sex: Male

DRUGS (10)
  1. LASIX [Concomitant]
     Dosage: 80 MG, BID LONG TERM USE
     Route: 048
  2. TRASYLOL [Suspect]
     Dosage: UNK
     Route: 042
     Dates: start: 20040401
  3. MINOXIDIL [Concomitant]
     Dosage: 10 MG BID, LONG TERM USE
     Route: 048
  4. METOLAZONE [Concomitant]
     Dosage: 2.5 MG MON-WED-FRI
     Route: 048
     Dates: start: 19920810
  5. TRASYLOL [Suspect]
     Indication: CORONARY ARTERY BYPASS
     Dosage: UNK
     Route: 042
     Dates: start: 19960215
  6. HEPARIN [Concomitant]
     Dosage: UNK
     Route: 042
     Dates: start: 19960215
  7. TRASYLOL [Suspect]
     Dosage: 2,000,000 KIU
     Route: 042
     Dates: start: 20040512
  8. PROTAMINE SULFATE [Concomitant]
     Dosage: UNK
     Dates: start: 19960215, end: 19960215
  9. INDERAL [Concomitant]
     Dosage: 120 MG BID, LONG TERM USE
     Route: 048
  10. NORVASC [Concomitant]
     Dosage: 5 MG, BID
     Route: 048
     Dates: start: 19950313

REACTIONS (14)
  - RENAL FAILURE [None]
  - CARDIAC DISORDER [None]
  - DEPRESSION [None]
  - RENAL INJURY [None]
  - ANXIETY [None]
  - ORGAN FAILURE [None]
  - FEAR [None]
  - PAIN [None]
  - INJURY [None]
  - RENAL IMPAIRMENT [None]
  - CEREBROVASCULAR ACCIDENT [None]
  - UNEVALUABLE EVENT [None]
  - ANHEDONIA [None]
  - DEATH [None]
